FAERS Safety Report 19604281 (Version 32)
Quarter: 2024Q1

REPORT INFORMATION
  Report Type: Spontaneous
  Country: US (occurrence: US)
  Receive Date: 20210723
  Receipt Date: 20240125
  Transmission Date: 20240410
  Serious: Yes (Hospitalization, Other)
  Sender: FDA-Public Use
  Company Number: US-PFIZER INC-2021664552

PATIENT
  Age: 70 Year
  Sex: Female
  Weight: 57.15 kg

DRUGS (8)
  1. IBRANCE [Suspect]
     Active Substance: PALBOCICLIB
     Indication: Breast cancer female
     Dosage: 125 MG ONCE DAILY
     Route: 048
  2. IBRANCE [Suspect]
     Active Substance: PALBOCICLIB
     Dosage: 125 MG
     Dates: start: 20220131
  3. IBRANCE [Suspect]
     Active Substance: PALBOCICLIB
     Dosage: 125MG AT DINNER TIME, THEN 7 DAYS OFF AND THEN ON FOR 3 WEEKS
     Dates: end: 2022
  4. IBRANCE [Suspect]
     Active Substance: PALBOCICLIB
     Dosage: 125 MG, DAILY
     Route: 048
     Dates: start: 20221228
  5. IBRANCE [Suspect]
     Active Substance: PALBOCICLIB
     Dosage: 125 MG, DAILY
     Dates: start: 20230224
  6. IBRANCE [Suspect]
     Active Substance: PALBOCICLIB
     Dosage: 125 MG
     Dates: start: 20230404
  7. IBRANCE [Suspect]
     Active Substance: PALBOCICLIB
     Dosage: 125 MG
     Dates: start: 20230823
  8. IBRANCE [Suspect]
     Active Substance: PALBOCICLIB
     Dosage: 1 TABLET DAILY FOR 3 WEEKS, THEN 1 WEEK OFF FOR 28 DAY CYCLE
     Route: 048

REACTIONS (51)
  - Pain in extremity [Recovered/Resolved]
  - Red blood cell count decreased [Recovered/Resolved]
  - Lower limb fracture [Recovered/Resolved]
  - Fall [Recovered/Resolved]
  - Second primary malignancy [Recovered/Resolved]
  - Lung neoplasm malignant [Recovered/Resolved]
  - Weight decreased [Recovered/Resolved]
  - Cataract [Recovered/Resolved]
  - Thrombosis [Recovered/Resolved]
  - Eye haemorrhage [Unknown]
  - Pneumonia [Recovered/Resolved]
  - Product dose omission issue [Unknown]
  - Wrong technique in product usage process [Unknown]
  - Arthritis [Recovered/Resolved]
  - Gait disturbance [Recovered/Resolved]
  - Increased upper airway secretion [Recovered/Resolved]
  - Sputum increased [Recovered/Resolved]
  - Immune system disorder [Recovered/Resolved]
  - Malaise [Recovered/Resolved]
  - Feeding disorder [Recovered/Resolved]
  - Sciatica [Recovered/Resolved]
  - Nervous system disorder [Recovered/Resolved]
  - Taste disorder [Recovered/Resolved]
  - Tooth extraction [Recovered/Resolved]
  - Memory impairment [Recovered/Resolved]
  - Gingival discomfort [Recovered/Resolved]
  - Mouth haemorrhage [Recovered/Resolved]
  - Mastication disorder [Recovered/Resolved]
  - Gait inability [Recovered/Resolved]
  - Speech disorder [Recovered/Resolved]
  - Dyspnoea exertional [Recovered/Resolved]
  - Dyspnoea [Recovered/Resolved]
  - Blood potassium decreased [Unknown]
  - Poor quality sleep [Unknown]
  - Weight decreased [Unknown]
  - Crying [Unknown]
  - Joint effusion [Unknown]
  - Feeling abnormal [Unknown]
  - Paranoia [Unknown]
  - Balance disorder [Unknown]
  - Full blood count decreased [Unknown]
  - Asthenia [Recovered/Resolved]
  - Sinusitis [Recovered/Resolved]
  - Oral pain [Recovered/Resolved]
  - Decreased appetite [Recovered/Resolved]
  - Fatigue [Recovered/Resolved]
  - Alopecia [Recovered/Resolved]
  - Arthropathy [Unknown]
  - Dyspepsia [Unknown]
  - Laryngitis [Unknown]
  - Illness [Unknown]

NARRATIVE: CASE EVENT DATE: 20200101
